FAERS Safety Report 19811398 (Version 1)
Quarter: 2021Q3

REPORT INFORMATION
  Report Type: Spontaneous
  Country: CN (occurrence: CN)
  Receive Date: 20210909
  Receipt Date: 20210909
  Transmission Date: 20211014
  Serious: Yes (Other)
  Sender: FDA-Public Use
  Company Number: CN-PFIZER INC-202101119686

PATIENT
  Age: 57 Year
  Sex: Female
  Weight: 59 kg

DRUGS (2)
  1. ANZATAX (PACLITAXEL) [Suspect]
     Active Substance: PACLITAXEL
     Indication: OVARIAN CANCER
     Dosage: UNK
     Dates: start: 202104
  2. ANZATAX (PACLITAXEL) [Suspect]
     Active Substance: PACLITAXEL
     Dosage: 270 MG, 1X/DAY
     Route: 041
     Dates: start: 20210802

REACTIONS (2)
  - Chest discomfort [Recovering/Resolving]
  - Palpitations [Recovering/Resolving]

NARRATIVE: CASE EVENT DATE: 20210802
